FAERS Safety Report 19151182 (Version 3)
Quarter: 2021Q2

REPORT INFORMATION
  Report Type: Spontaneous
  Country: US (occurrence: US)
  Receive Date: 20210419
  Receipt Date: 20210524
  Transmission Date: 20210717
  Serious: No
  Sender: FDA-Public Use
  Company Number: US-BEH-2021130687

PATIENT
  Age: 59 Year
  Sex: Female

DRUGS (4)
  1. HIZENTRA [Suspect]
     Active Substance: HUMAN IMMUNOGLOBULIN G
     Dosage: 8 GRAM, QW
     Route: 058
  2. HIZENTRA [Suspect]
     Active Substance: HUMAN IMMUNOGLOBULIN G
     Indication: PRIMARY IMMUNODEFICIENCY SYNDROME
     Dosage: 10 GRAM, QOW
     Route: 058
     Dates: start: 20200201
  3. DUPILUMAB [Suspect]
     Active Substance: DUPILUMAB
     Indication: DERMATITIS ATOPIC
     Dosage: 600 MILLIGRAM, OD
     Route: 058
     Dates: end: 20210305
  4. DUPILUMAB [Suspect]
     Active Substance: DUPILUMAB
     Dosage: 300 MILLIGRAM, QOW
     Route: 058

REACTIONS (7)
  - Incorrect product administration duration [Unknown]
  - No adverse event [Unknown]
  - Infusion site reaction [Unknown]
  - Eczema [Not Recovered/Not Resolved]
  - Blood immunoglobulin G decreased [Unknown]
  - Dermatitis atopic [Unknown]
  - Eczema [Unknown]

NARRATIVE: CASE EVENT DATE: 20200801
